FAERS Safety Report 14789429 (Version 1)
Quarter: 2018Q2

REPORT INFORMATION
  Report Type: Spontaneous
  Country: DE (occurrence: DE)
  Receive Date: 20180423
  Receipt Date: 20180423
  Transmission Date: 20180711
  Serious: Yes (Hospitalization)
  Sender: FDA-Public Use
  Company Number: DE-AUROBINDO-AUR-APL-2018-021441

PATIENT
  Age: 78 Year
  Sex: Male
  Weight: 86 kg

DRUGS (3)
  1. NEBIVOLOL. [Suspect]
     Active Substance: NEBIVOLOL
     Dosage: 5 MG,
     Route: 048
  2. ENOXAPARIN [Concomitant]
     Active Substance: ENOXAPARIN
     Dosage: 0.4 ML, 0-0-1-0
     Route: 058
  3. LOSARTAN. [Suspect]
     Active Substance: LOSARTAN
     Dosage: 25 MG, 1-0-0-0
     Route: 048

REACTIONS (2)
  - Arrhythmia [Recovering/Resolving]
  - Hypertensive emergency [Recovering/Resolving]

NARRATIVE: CASE EVENT DATE: 20151027
